FAERS Safety Report 20131989 (Version 1)
Quarter: 2021Q4

REPORT INFORMATION
  Report Type: Spontaneous
  Country: US (occurrence: US)
  Receive Date: 20211130
  Receipt Date: 20211130
  Transmission Date: 20220303
  Serious: Yes (Death, Hospitalization)
  Sender: FDA-Public Use
  Company Number: US-ELI_LILLY_AND_COMPANY-US202111012823

PATIENT
  Age: 75 Year
  Sex: Male

DRUGS (2)
  1. ETESEVIMAB [Suspect]
     Active Substance: ETESEVIMAB
     Indication: COVID-19 pneumonia
     Dosage: UNK UNK, SINGLE
     Route: 065
     Dates: start: 20211118, end: 20211118
  2. BAMLANIVIMAB [Suspect]
     Active Substance: BAMLANIVIMAB
     Indication: COVID-19 pneumonia
     Dosage: UNK UNK, SINGLE
     Route: 065
     Dates: start: 20211118, end: 20211118

REACTIONS (2)
  - Death [Fatal]
  - Gastritis bacterial [Unknown]

NARRATIVE: CASE EVENT DATE: 20211122
